FAERS Safety Report 18251919 (Version 1)
Quarter: 2020Q3

REPORT INFORMATION
  Report Type: Spontaneous
  Country: US (occurrence: US)
  Receive Date: 20200909
  Receipt Date: 20200909
  Transmission Date: 20201103
  Serious: Yes (Other)
  Sender: FDA-Public Use
  Company Number: None

PATIENT
  Age: 39 Year
  Sex: Female
  Weight: 76.05 kg

DRUGS (13)
  1. REYVOW [Suspect]
     Active Substance: LASMIDITAN
     Indication: MIGRAINE
     Dosage: ?          QUANTITY:1 TABLET(S);?
     Route: 048
     Dates: start: 20200903, end: 20200903
  2. BUSPIRONE [Concomitant]
     Active Substance: BUSPIRONE HYDROCHLORIDE
  3. XANAX [Concomitant]
     Active Substance: ALPRAZOLAM
  4. TORADOL [Concomitant]
     Active Substance: KETOROLAC TROMETHAMINE
  5. WELLBUTRIN XL [Concomitant]
     Active Substance: BUPROPION HYDROCHLORIDE
  6. PEPCID [Concomitant]
     Active Substance: FAMOTIDINE
  7. SPIRONOLACTONE. [Concomitant]
     Active Substance: SPIRONOLACTONE
  8. OMEPRAZOLE. [Concomitant]
     Active Substance: OMEPRAZOLE
  9. TRAZODONE [Concomitant]
     Active Substance: TRAZODONE HYDROCHLORIDE
  10. ROBAXIN [Concomitant]
     Active Substance: METHOCARBAMOL
  11. AMITIZA [Concomitant]
     Active Substance: LUBIPROSTONE
  12. LORAZEPAM. [Concomitant]
     Active Substance: LORAZEPAM
  13. FLONASE [Concomitant]
     Active Substance: FLUTICASONE PROPIONATE

REACTIONS (18)
  - Gait disturbance [None]
  - Abdominal discomfort [None]
  - Vomiting [None]
  - Agitation [None]
  - Memory impairment [None]
  - Crying [None]
  - Anxiety [None]
  - Headache [None]
  - Nausea [None]
  - Diarrhoea [None]
  - Photosensitivity reaction [None]
  - Aphasia [None]
  - Muscle twitching [None]
  - Loss of consciousness [None]
  - Lethargy [None]
  - Nervousness [None]
  - Dizziness [None]
  - Serotonin syndrome [None]

NARRATIVE: CASE EVENT DATE: 20200903
